FAERS Safety Report 23909935 (Version 1)
Quarter: 2024Q2

REPORT INFORMATION
  Report Type: Spontaneous
  Country: CN (occurrence: CN)
  Receive Date: 20240528
  Receipt Date: 20240528
  Transmission Date: 20240715
  Serious: Yes (Other)
  Sender: FDA-Public Use
  Company Number: CN-002147023-NVSC2024CN110156

PATIENT
  Age: 66 Year
  Sex: Male

DRUGS (2)
  1. IMATINIB MESYLATE [Suspect]
     Active Substance: IMATINIB MESYLATE
     Indication: Gastrointestinal stromal tumour
     Dosage: 400MG ?D -1
     Route: 065
  2. IMATINIB MESYLATE [Suspect]
     Active Substance: IMATINIB MESYLATE
     Dosage: 600MG ?D -1
     Route: 065

REACTIONS (3)
  - Gastrointestinal stromal tumour [Recovering/Resolving]
  - Malignant neoplasm progression [Unknown]
  - Pelvic neoplasm [Unknown]
